FAERS Safety Report 21564571 (Version 2)
Quarter: 2022Q4

REPORT INFORMATION
  Report Type: Spontaneous
  Country: US (occurrence: US)
  Receive Date: 20221108
  Receipt Date: 20221114
  Transmission Date: 20230113
  Serious: Yes (Other)
  Sender: FDA-Public Use
  Company Number: US-BRISTOL-MYERS SQUIBB COMPANY-2022-130570

PATIENT
  Age: 33 Year
  Sex: Female

DRUGS (7)
  1. NIVOLUMAB [Suspect]
     Active Substance: NIVOLUMAB
     Indication: Metastatic malignant melanoma
     Dosage: NIVO AND IPI COMBINATION THERAPY (DOSE AT 1MG/KG, 3MG/KG)?COMBINATION THERAPY-ICI TREATMENT WAS HELD
     Route: 065
  2. NIVOLUMAB [Suspect]
     Active Substance: NIVOLUMAB
     Dosage: RESTARTED WITH MONOTHERAPY
     Route: 065
  3. NIVOLUMAB [Suspect]
     Active Substance: NIVOLUMAB
     Dosage: STARTED WITH COMBINATION WITH IPI
     Route: 065
  4. NIVOLUMAB [Suspect]
     Active Substance: NIVOLUMAB
     Dosage: RESTARTED WITH MONOTHERAPY
     Route: 065
  5. IPILIMUMAB [Suspect]
     Active Substance: IPILIMUMAB
     Indication: Metastatic malignant melanoma
     Dosage: NIVO AND IPI COMBINATION THERAPY (DOSE AT 1MG/KG, 3MG/KG)?COMBINATION THERAPY-ICI TREATMENT WAS HELD
     Route: 065
  6. IPILIMUMAB [Suspect]
     Active Substance: IPILIMUMAB
     Dosage: RESTARTED ON AN UNKNOWN DATE
     Route: 065
  7. ATENOLOL [Concomitant]
     Active Substance: ATENOLOL
     Indication: Hyperthyroidism

REACTIONS (1)
  - Immune-mediated hypophysitis [Recovered/Resolved]
